FAERS Safety Report 17959528 (Version 1)
Quarter: 2020Q2

REPORT INFORMATION
  Report Type: Spontaneous
  Country: FR (occurrence: FR)
  Receive Date: 20200629
  Receipt Date: 20200629
  Transmission Date: 20200714
  Serious: Yes (Life-Threatening, Hospitalization, Other)
  Sender: FDA-Public Use
  Company Number: FR-SA-2020SA166030

PATIENT

DRUGS (4)
  1. CLONAZEPAM. [Interacting]
     Active Substance: CLONAZEPAM
     Indication: SUICIDE ATTEMPT
     Dosage: 3 DF, TOTAL
     Route: 048
     Dates: start: 20200525
  2. STILNOX [Suspect]
     Active Substance: ZOLPIDEM TARTRATE
     Dosage: 7 DF, TOTAL
     Route: 048
     Dates: start: 20200525
  3. THERALENE [Interacting]
     Active Substance: TRIMEPRAZINE
     Indication: SUICIDE ATTEMPT
     Dosage: 18 DF, TOTAL
     Route: 048
     Dates: start: 20200525
  4. AMITRIPTYLINE HYDROCHLORIDE. [Interacting]
     Active Substance: AMITRIPTYLINE HYDROCHLORIDE
     Indication: SUICIDE ATTEMPT
     Dosage: 3 DF, 1X
     Route: 048
     Dates: start: 20200525

REACTIONS (3)
  - Coma [Recovered/Resolved]
  - Intentional overdose [Unknown]
  - Hypoxia [Recovered/Resolved]

NARRATIVE: CASE EVENT DATE: 20200525
